FAERS Safety Report 7241482-X (Version None)
Quarter: 2011Q1

REPORT INFORMATION
  Report Type: 
  Country: None (occurrence: None)
  Receive Date: 20110120
  Receipt Date: 20110120
  Transmission Date: 20110831
  Serious: Yes (Death, Life-Threatening, Disabling, Other)
  Sender: FDA-Public Use
  Company Number: None

PATIENT
  Age: 71 Year
  Sex: Male
  Weight: 100 kg

DRUGS (12)
  1. ENABLEX [Concomitant]
  2. HALDOL [Suspect]
     Indication: AGITATION
     Dosage: HALDOL PRN BUT ADM. Q DAY IV AND IM
     Dates: start: 20101118, end: 20101130
  3. ATIVAN [Suspect]
     Indication: DEMENTIA ALZHEIMER'S TYPE
     Dosage: ATIVAN PRN IM
     Route: 030
     Dates: start: 20101201, end: 20101208
  4. WARFARIN SODIUM [Concomitant]
  5. ASPIRIN [Concomitant]
  6. ATENOLOL [Concomitant]
  7. MEMANTINE [Concomitant]
  8. DILTIAZEM [Concomitant]
  9. ANESTHETICS [Concomitant]
  10. AMLODIPINE [Concomitant]
  11. EXELON [Concomitant]
  12. FLOMAX [Concomitant]

REACTIONS (13)
  - AGITATION [None]
  - APALLIC SYNDROME [None]
  - CONFUSIONAL STATE [None]
  - DECREASED APPETITE [None]
  - EXTRAPYRAMIDAL DISORDER [None]
  - THROAT TIGHTNESS [None]
  - DYSPHAGIA [None]
  - APHAGIA [None]
  - PYREXIA [None]
  - CATATONIA [None]
  - SPEECH DISORDER [None]
  - DEPRESSED LEVEL OF CONSCIOUSNESS [None]
  - DYSURIA [None]
